FAERS Safety Report 12467619 (Version 3)
Quarter: 2017Q3

REPORT INFORMATION
  Report Type: Report from Study
  Country: US (occurrence: US)
  Receive Date: 20160615
  Receipt Date: 20170927
  Transmission Date: 20171127
  Serious: Yes (Other)
  Sender: FDA-Public Use
  Company Number: PHEH2016US014223

PATIENT
  Age: 46 Year
  Sex: Male

DRUGS (2)
  1. GILENYA [Suspect]
     Active Substance: FINGOLIMOD HYDROCHLORIDE
     Indication: RELAPSING-REMITTING MULTIPLE SCLEROSIS
     Dosage: 0.5 MG, QD
     Route: 048
     Dates: start: 20160103
  2. BIOTIN [Concomitant]
     Active Substance: BIOTIN
     Indication: PRODUCT USED FOR UNKNOWN INDICATION
     Route: 065

REACTIONS (21)
  - Urinary hesitation [Unknown]
  - Visual impairment [Unknown]
  - Clonus [Unknown]
  - Hypokinesia [Unknown]
  - Burning sensation [Unknown]
  - Amnesia [Unknown]
  - Muscle spasms [Unknown]
  - Limb discomfort [Unknown]
  - Muscle tightness [Unknown]
  - Diplopia [Unknown]
  - Vitamin D deficiency [Unknown]
  - Pain in extremity [Unknown]
  - Gait spastic [Unknown]
  - Optic atrophy [Unknown]
  - Blood pressure decreased [Not Recovered/Not Resolved]
  - Paraesthesia [Unknown]
  - Decreased vibratory sense [Unknown]
  - Fatigue [Unknown]
  - Coordination abnormal [Unknown]
  - Liver function test abnormal [Recovered/Resolved]
  - Vision blurred [Unknown]

NARRATIVE: CASE EVENT DATE: 20160407
